FAERS Safety Report 15479538 (Version 4)
Quarter: 2020Q3

REPORT INFORMATION
  Report Type: Report from Study
  Country: CA (occurrence: CA)
  Receive Date: 20181009
  Receipt Date: 20181204
  Transmission Date: 20201105
  Serious: Yes (Hospitalization)
  Sender: FDA-Public Use
  Company Number: CA-ASTRAZENECA-2018SF29053

PATIENT
  Age: 64 Year
  Sex: Male

DRUGS (8)
  1. PANTOLOC [Concomitant]
     Active Substance: PANTOPRAZOLE SODIUM
     Indication: GASTROOESOPHAGEAL REFLUX DISEASE
     Route: 065
     Dates: start: 20180515
  2. INFLIXIMAB [Concomitant]
     Active Substance: INFLIXIMAB
     Indication: DIARRHOEA
     Route: 065
     Dates: start: 20180905, end: 20180905
  3. FLUCONAZOLE. [Concomitant]
     Active Substance: FLUCONAZOLE
     Indication: CANDIDA INFECTION
     Route: 065
     Dates: start: 20180927, end: 20181003
  4. METHYLPREDNISOLONE. [Concomitant]
     Active Substance: METHYLPREDNISOLONE
     Indication: DIARRHOEA
     Route: 065
     Dates: start: 20180829
  5. TREMELIMUMAB. [Suspect]
     Active Substance: TREMELIMUMAB
     Indication: NON-SMALL CELL LUNG CANCER
     Route: 042
     Dates: start: 20180727
  6. PIPERACILLIN WITH TAZOBACTAM [Concomitant]
     Indication: PNEUMONITIS
     Route: 065
     Dates: start: 20181003, end: 20181008
  7. INDOMETHACIN. [Concomitant]
     Active Substance: INDOMETHACIN
     Indication: GOUT
     Route: 065
     Dates: start: 201805
  8. DURVALUMAB. [Suspect]
     Active Substance: DURVALUMAB
     Indication: NON-SMALL CELL LUNG CANCER
     Route: 042
     Dates: start: 20180727

REACTIONS (6)
  - Pyrexia [Recovered/Resolved]
  - Pneumonitis [Recovered/Resolved]
  - Decreased appetite [Recovered/Resolved]
  - Headache [Recovered/Resolved]
  - Diarrhoea [Recovered/Resolved]
  - Fatigue [Recovered/Resolved]

NARRATIVE: CASE EVENT DATE: 201809
